FAERS Safety Report 23596848 (Version 1)
Quarter: 2024Q1

REPORT INFORMATION
  Report Type: Spontaneous
  Country: US (occurrence: US)
  Receive Date: 20240305
  Receipt Date: 20240305
  Transmission Date: 20240410
  Serious: No
  Sender: FDA-Public Use
  Company Number: US-IBSA PHARMA INC.-2023IBS000575

PATIENT

DRUGS (1)
  1. DICLOFENAC EPOLAMINE [Suspect]
     Active Substance: DICLOFENAC EPOLAMINE
     Indication: Product used for unknown indication
     Dosage: UNK
     Dates: start: 2022, end: 2023

REACTIONS (5)
  - Application site swelling [Unknown]
  - Application site burn [Not Recovered/Not Resolved]
  - Application site vesicles [Unknown]
  - Application site irritation [Unknown]
  - Product quality issue [Unknown]

NARRATIVE: CASE EVENT DATE: 20230501
